FAERS Safety Report 7679056-9 (Version None)
Quarter: 2011Q3

REPORT INFORMATION
  Report Type: 
  Country: None (occurrence: None)
  Receive Date: 20110812
  Receipt Date: 20110805
  Transmission Date: 20111222
  Serious: Yes (Death, Hospitalization, Other)
  Sender: FDA-Public Use
  Company Number: US-AMGEN-USASP2011039599

PATIENT
  Age: 69 Year
  Sex: Male

DRUGS (2)
  1. CORTICOSTEROIDS [Concomitant]
  2. NPLATE [Suspect]
     Indication: IDIOPATHIC THROMBOCYTOPENIC PURPURA
     Dates: start: 20110406, end: 20110420

REACTIONS (12)
  - PANCYTOPENIA [None]
  - TROPONIN INCREASED [None]
  - HYPERTENSION [None]
  - PNEUMONIA [None]
  - CORONARY ARTERY DISEASE [None]
  - HYPERKALAEMIA [None]
  - OEDEMA PERIPHERAL [None]
  - CHRONIC OBSTRUCTIVE PULMONARY DISEASE [None]
  - HYPERGLYCAEMIA [None]
  - CHRONIC LYMPHOCYTIC LEUKAEMIA [None]
  - NON-SMALL CELL LUNG CANCER [None]
  - ACUTE RESPIRATORY FAILURE [None]
